FAERS Safety Report 14965888 (Version 1)
Quarter: 2018Q2

REPORT INFORMATION
  Report Type: Report from Study
  Country: US (occurrence: US)
  Receive Date: 20180602
  Receipt Date: 20180602
  Transmission Date: 20180711
  Serious: Yes (Other)
  Sender: FDA-Public Use
  Company Number: US-TEVA-2018-US-899575

PATIENT
  Age: 61 Year
  Sex: Female

DRUGS (14)
  1. TOCOPHEROL [Concomitant]
     Active Substance: TOCOPHEROL
  2. TRAVOPROST. [Concomitant]
     Active Substance: TRAVOPROST
  3. VITAMIN D [Concomitant]
     Active Substance: CHOLECALCIFEROL
  4. CIPROFLOXACIN. [Concomitant]
     Active Substance: CIPROFLOXACIN
  5. ALLEGRA [Concomitant]
     Active Substance: FEXOFENADINE HYDROCHLORIDE
  6. COPAXONE [Suspect]
     Active Substance: GLATIRAMER ACETATE
     Indication: MULTIPLE SCLEROSIS
     Route: 058
     Dates: start: 20090701
  7. BABY ASPIRIN [Concomitant]
     Active Substance: ASPIRIN
  8. CEPHALEXIN. [Concomitant]
     Active Substance: CEPHALEXIN
  9. CITRACAL [Concomitant]
     Active Substance: CALCIUM CITRATE
  10. FLEXERIL [Concomitant]
     Active Substance: CYCLOBENZAPRINE HYDROCHLORIDE
  11. FLUOXETINE [Concomitant]
     Active Substance: FLUOXETINE HYDROCHLORIDE
  12. TRAVATAN [Concomitant]
     Active Substance: TRAVOPROST
  13. GABAPENTIN. [Concomitant]
     Active Substance: GABAPENTIN
  14. MULTIVITAMIN [Concomitant]
     Active Substance: VITAMINS

REACTIONS (2)
  - Balance disorder [Not Recovered/Not Resolved]
  - Multiple sclerosis relapse [Not Recovered/Not Resolved]
